FAERS Safety Report 9154881 (Version 1)
Quarter: 2013Q1

REPORT INFORMATION
  Report Type: Spontaneous
  Country: CH (occurrence: CH)
  Receive Date: 20130311
  Receipt Date: 20130311
  Transmission Date: 20140127
  Serious: Yes (Life-Threatening, Hospitalization)
  Sender: FDA-Public Use
  Company Number: CH-ASTRAZENECA-2013SE15516

PATIENT
  Age: 31 Year
  Sex: Female

DRUGS (15)
  1. NEXIUM [Suspect]
     Indication: GASTRITIS
     Route: 048
     Dates: start: 20130213, end: 20130220
  2. IBUPROFEN [Suspect]
     Indication: PHARYNGITIS
     Dosage: AS NECESSARY
     Route: 048
     Dates: start: 20130208, end: 20130220
  3. NOVALGIN [Suspect]
     Indication: ARTHRALGIA
     Route: 048
     Dates: start: 201211, end: 20130220
  4. SIFROL [Concomitant]
     Indication: POLYNEUROPATHY
     Route: 048
     Dates: end: 20130220
  5. MOTILIUM [Concomitant]
     Indication: NAUSEA
     Route: 048
     Dates: end: 20130220
  6. MOTILIUM [Concomitant]
     Indication: VOMITING
     Route: 048
     Dates: end: 20130220
  7. PANTOPRAZOLE [Concomitant]
     Indication: GASTRITIS
     Route: 048
     Dates: start: 20130207, end: 20130212
  8. TRAMADOL [Concomitant]
     Indication: PHARYNGITIS
     Dosage: AS NECESSARY
     Route: 048
     Dates: start: 20130208, end: 20130223
  9. DAFALGAN [Concomitant]
     Indication: PHARYNGITIS
     Dosage: AS NECESSARY
     Route: 048
     Dates: start: 20130208
  10. FLUOXETIN [Concomitant]
     Indication: DEPRESSION
     Route: 048
     Dates: start: 2011
  11. XANAX [Concomitant]
     Indication: DEPRESSION
     Route: 048
     Dates: start: 2011
  12. ZOLDORM [Concomitant]
     Indication: SLEEP DISORDER
     Route: 048
     Dates: start: 2012
  13. CERAZETTE [Concomitant]
     Indication: ORAL CONTRACEPTION
     Route: 048
  14. PROCEF [Concomitant]
     Indication: PHARYNGITIS
     Route: 048
     Dates: start: 20130208, end: 20130213
  15. PENICILLIN V [Concomitant]
     Indication: PHARYNGITIS
     Route: 048
     Dates: start: 20130213, end: 20130220

REACTIONS (5)
  - Sepsis [Recovering/Resolving]
  - Anaemia [Recovered/Resolved]
  - Skin infection [Recovering/Resolving]
  - Agranulocytosis [Recovered/Resolved]
  - Pharyngitis [Recovering/Resolving]
